FAERS Safety Report 26040911 (Version 1)
Quarter: 2025Q4

REPORT INFORMATION
  Report Type: Spontaneous
  Country: US (occurrence: US)
  Receive Date: 20251113
  Receipt Date: 20251113
  Transmission Date: 20260117
  Serious: Yes (Life-Threatening, Hospitalization)
  Sender: MYLAN
  Company Number: US-MYLANLABS-2025M1095933

PATIENT
  Age: 4 Year
  Sex: Male

DRUGS (3)
  1. TACROLIMUS [Interacting]
     Active Substance: TACROLIMUS
     Indication: Immunosuppressant drug therapy
     Dosage: UNK
  2. TACROLIMUS [Interacting]
     Active Substance: TACROLIMUS
     Dosage: 1.8 MILLIGRAM, BID, DISCONTINUED THEN RESTARTED
  3. NICARDIPINE [Interacting]
     Active Substance: NICARDIPINE
     Indication: Hypertension
     Dosage: UNK

REACTIONS (6)
  - Labelled drug-drug interaction medication error [Recovering/Resolving]
  - Acute kidney injury [Recovered/Resolved]
  - Anuria [Recovered/Resolved]
  - Hypervolaemia [Recovering/Resolving]
  - Respiratory failure [Recovering/Resolving]
  - Toxicity to various agents [Recovering/Resolving]
